FAERS Safety Report 6384831-7 (Version None)
Quarter: 2009Q4

REPORT INFORMATION
  Report Type: 
  Country: None (occurrence: None)
  Receive Date: 20091002
  Receipt Date: 20090928
  Transmission Date: 20100525
  Serious: Yes (Hospitalization)
  Sender: FDA-Public Use
  Company Number: US-BIOGENIDEC-2009BI019547

PATIENT
  Age: 54 Year
  Sex: Female
  Weight: 60 kg

DRUGS (14)
  1. TYSABRI [Suspect]
     Indication: CROHN'S DISEASE
     Route: 042
     Dates: start: 20081223
  2. TYSABRI [Suspect]
     Dates: end: 20050210
  3. WELLBUTRIN SR [Concomitant]
     Indication: DEPRESSION
  4. SYNTHROID [Concomitant]
     Indication: HYPOTHYROIDISM
  5. BONIVA [Concomitant]
     Indication: OSTEOPOROSIS
     Route: 042
  6. BONIVA [Concomitant]
     Indication: OSTEOPENIA
     Route: 042
  7. NEXIUM [Concomitant]
     Indication: GASTROOESOPHAGEAL REFLUX DISEASE
  8. VIVELLE [Concomitant]
     Indication: HORMONE REPLACEMENT THERAPY
  9. VITAMIN B-12 [Concomitant]
  10. ASACOL [Concomitant]
     Indication: CROHN'S DISEASE
  11. BOTOX [Concomitant]
     Indication: FACIAL SPASM
  12. BOTOX [Concomitant]
     Indication: FACIAL PALSY
  13. BOTOX [Concomitant]
     Indication: EYE DISORDER
  14. PREDNISONE [Concomitant]

REACTIONS (3)
  - BRAIN STEM SYNDROME [None]
  - FACIAL SPASM [None]
  - THORACIC OUTLET SYNDROME [None]
